FAERS Safety Report 24332842 (Version 3)
Quarter: 2024Q4

REPORT INFORMATION
  Report Type: Spontaneous
  Country: CA (occurrence: CA)
  Receive Date: 20240918
  Receipt Date: 20241202
  Transmission Date: 20250114
  Serious: No
  Sender: PFIZER
  Company Number: CA-PFIZER INC-202400256348

PATIENT
  Age: 43 Year
  Sex: Female

DRUGS (1)
  1. ABRILADA [Suspect]
     Active Substance: ADALIMUMAB-AFZB
     Indication: Crohn^s disease
     Dosage: 1 DF (W0 160 MG, W2 80 MG, THEN 40 MG EVERY OTHER WEEKS)
     Route: 058
     Dates: start: 20230912

REACTIONS (2)
  - Injection site pain [Unknown]
  - Patient-device incompatibility [Unknown]
